FAERS Safety Report 10022247 (Version 1)
Quarter: 2014Q1

REPORT INFORMATION
  Report Type: Spontaneous
  Country: DE (occurrence: DE)
  Receive Date: 20140319
  Receipt Date: 20140319
  Transmission Date: 20141002
  Serious: Yes (Other)
  Sender: FDA-Public Use
  Company Number: DE-WATSON-2014-04861

PATIENT
  Age: 1 Day
  Sex: Male
  Weight: 3 kg

DRUGS (5)
  1. OPIPRAMOL (UNKNOWN) [Suspect]
     Indication: ANXIETY DISORDER
     Dosage: 50 MG, DAILY
     Route: 064
     Dates: end: 20130504
  2. DIAZEPAM (UNKNOWN) [Suspect]
     Indication: ANXIETY DISORDER
     Dosage: 2 MG, PRN
     Route: 064
     Dates: start: 20120826, end: 20130504
  3. MELPERONE [Concomitant]
     Indication: ANXIETY DISORDER
     Dosage: UNK
     Route: 064
  4. KADEFUNGIN [Concomitant]
     Indication: VULVOVAGINAL MYCOTIC INFECTION
     Dosage: ALMOST EVERY TWO WEEKS FOR THREE DAYS
     Route: 064
  5. FEMIBION [Concomitant]
     Indication: PROPHYLAXIS OF NEURAL TUBE DEFECT
     Dosage: 0.4 MG, DAILY
     Route: 064
     Dates: start: 2013

REACTIONS (5)
  - Neonatal respiratory distress syndrome [Recovered/Resolved]
  - Oxygen saturation decreased [Recovered/Resolved]
  - Motor developmental delay [Unknown]
  - Foetal exposure during pregnancy [Recovered/Resolved]
  - Placenta praevia [Recovered/Resolved]
